FAERS Safety Report 18652643 (Version 1)
Quarter: 2020Q4

REPORT INFORMATION
  Report Type: Spontaneous
  Country: US (occurrence: US)
  Receive Date: 20201221
  Receipt Date: 20201221
  Transmission Date: 20210114
  Serious: Yes (Hospitalization)
  Sender: FDA-Public Use
  Company Number: None

PATIENT
  Age: 21 Year
  Sex: Female
  Weight: 53.07 kg

DRUGS (3)
  1. REMICADE [Suspect]
     Active Substance: INFLIXIMAB
     Dosage: ?          OTHER FREQUENCY:Q 8 WEEKS;?
  2. AMITRIPTOLINE HCL [Concomitant]
     Active Substance: AMITRIPTYLINE HYDROCHLORIDE
  3. REMICADE [Suspect]
     Active Substance: INFLIXIMAB
     Dosage: ?          OTHER FREQUENCY:Q 8 WEEKS;?
     Dates: start: 20190909, end: 20190909

REACTIONS (4)
  - Haematocrit decreased [None]
  - Colitis ulcerative [None]
  - Blood glucose abnormal [None]
  - Haemoglobin decreased [None]

NARRATIVE: CASE EVENT DATE: 20190919
